FAERS Safety Report 7414511-8 (Version None)
Quarter: 2011Q2

REPORT INFORMATION
  Report Type: 
  Country: None (occurrence: None)
  Receive Date: 20110406
  Receipt Date: 20110324
  Transmission Date: 20111010
  Serious: No
  Sender: FDA-Public Use
  Company Number: VER-2011-00286

PATIENT
  Sex: Male

DRUGS (1)
  1. CYCLOSET [Suspect]
     Indication: DIABETES MELLITUS
     Dosage: 1.6 MG (1.6 MG,1 IN 1 D)

REACTIONS (3)
  - DIZZINESS [None]
  - HYPOTENSION [None]
  - DRUG DOSE OMISSION [None]
